FAERS Safety Report 8133356-7 (Version None)
Quarter: 2012Q1

REPORT INFORMATION
  Report Type: 
  Country: None (occurrence: None)
  Receive Date: 20120213
  Receipt Date: 20120201
  Transmission Date: 20120608
  Serious: No
  Sender: FDA-Public Use
  Company Number: JP-ACTELION-A-CH2011-53431

PATIENT
  Sex: Female
  Weight: 58 kg

DRUGS (11)
  1. AMLODIPINE BESYLATE [Concomitant]
  2. CANDESARTAN CILEXETIL [Concomitant]
  3. OXYGEN [Concomitant]
  4. TRACLEER [Suspect]
     Indication: PULMONARY ARTERIAL HYPERTENSION
     Dosage: 15.63 MG, BID
     Route: 048
     Dates: start: 20100605, end: 20100702
  5. DIMETHYL FUMARATE [Concomitant]
  6. FLUNITRAZEPAM [Concomitant]
  7. TANDOSPIRONE CITRATE [Concomitant]
  8. FAMOTIDINE [Concomitant]
  9. TADALAFIL [Concomitant]
  10. LOXOPROFEN SODIUM [Concomitant]
  11. BERAPROST SODIUM [Concomitant]

REACTIONS (3)
  - HEPATIC FUNCTION ABNORMAL [None]
  - NASOPHARYNGITIS [None]
  - GAMMA-GLUTAMYLTRANSFERASE INCREASED [None]
